FAERS Safety Report 19769393 (Version 1)
Quarter: 2021Q3

REPORT INFORMATION
  Report Type: Spontaneous
  Country: US (occurrence: US)
  Receive Date: 20210831
  Receipt Date: 20210831
  Transmission Date: 20211014
  Serious: No
  Sender: FDA-Public Use
  Company Number: None

PATIENT
  Age: 76 Year
  Sex: Male
  Weight: 52.2 kg

DRUGS (8)
  1. LEVOTHYROXINE 125MCG [Concomitant]
     Active Substance: LEVOTHYROXINE SODIUM
  2. LOMOTIL 2.5?0.025MG [Concomitant]
  3. GABAPENTIN 600MG [Concomitant]
     Active Substance: GABAPENTIN
  4. TOVIAZ [Concomitant]
     Active Substance: FESOTERODINE FUMARATE
  5. IBUPROFEN 200MG [Concomitant]
     Active Substance: IBUPROFEN
  6. ZELBORAF [Suspect]
     Active Substance: VEMURAFENIB
     Indication: THYROID CANCER
     Route: 048
     Dates: start: 20210414
  7. AMLODIPINE [Concomitant]
     Active Substance: AMLODIPINE BESYLATE
  8. IRBESARTAN 150MG [Concomitant]
     Active Substance: IRBESARTAN

REACTIONS (2)
  - Fatigue [None]
  - Sunburn [None]

NARRATIVE: CASE EVENT DATE: 20210831
